FAERS Safety Report 23394100 (Version 5)
Quarter: 2024Q1

REPORT INFORMATION
  Report Type: Spontaneous
  Country: US (occurrence: US)
  Receive Date: 20240111
  Receipt Date: 20240306
  Transmission Date: 20240409
  Serious: Yes (Hospitalization)
  Sender: FDA-Public Use
  Company Number: US-PFIZER INC-202400004199

PATIENT
  Age: 80 Year
  Sex: Female
  Weight: 62.6 kg

DRUGS (2)
  1. PAXLOVID [Suspect]
     Active Substance: NIRMATRELVIR\RITONAVIR
     Dosage: 3 DF, 2X/DAY
     Route: 048
     Dates: start: 20231231, end: 20240103
  2. PAXLOVID [Suspect]
     Active Substance: NIRMATRELVIR\RITONAVIR
     Dosage: UNK

REACTIONS (3)
  - Dysgeusia [Recovered/Resolved]
  - Dry mouth [Recovered/Resolved]
  - Hypersensitivity [Recovered/Resolved]

NARRATIVE: CASE EVENT DATE: 20240101
